FAERS Safety Report 16442997 (Version 2)
Quarter: 2019Q2

REPORT INFORMATION
  Report Type: Report from Study
  Country: EG (occurrence: EG)
  Receive Date: 20190617
  Receipt Date: 20190621
  Transmission Date: 20190711
  Serious: Yes (Hospitalization, Other)
  Sender: FDA-Public Use
  Company Number: PHHY2019EG136577

PATIENT
  Age: 59 Year
  Sex: Female

DRUGS (5)
  1. CONCOR [Concomitant]
     Active Substance: BISOPROLOL FUMARATE
     Indication: PRODUCT USED FOR UNKNOWN INDICATION
     Dosage: 1 DF, QD
     Route: 065
  2. SPRYCEL [Suspect]
     Active Substance: DASATINIB
     Indication: PRODUCT USED FOR UNKNOWN INDICATION
     Dosage: UNK
     Route: 065
  3. GLIVEC [Suspect]
     Active Substance: IMATINIB MESYLATE
     Indication: CHRONIC MYELOID LEUKAEMIA
     Dosage: UNK
     Route: 048
     Dates: end: 2013
  4. TASIGNA [Suspect]
     Active Substance: NILOTINIB
     Indication: CHRONIC MYELOID LEUKAEMIA
     Dosage: 800 MG, QD
     Route: 048
     Dates: start: 2014
  5. ASPOCID [Concomitant]
     Active Substance: ASPIRIN
     Indication: HYPERTENSION
     Dosage: UNK
     Route: 065

REACTIONS (13)
  - Swelling [Recovered/Resolved]
  - Dyspnoea [Recovering/Resolving]
  - Polymerase chain reaction positive [Recovering/Resolving]
  - Haemoglobin decreased [Recovered/Resolved]
  - Splenomegaly [Recovered/Resolved]
  - Platelet count decreased [Recovered/Resolved]
  - White blood cell count increased [Recovering/Resolving]
  - Diabetes mellitus [Unknown]
  - Gout [Recovered/Resolved]
  - Haemoglobin decreased [Recovered/Resolved]
  - Blood triglycerides increased [Recovered/Resolved]
  - Cardiac disorder [Recovering/Resolving]
  - Blood bilirubin increased [Recovered/Resolved]

NARRATIVE: CASE EVENT DATE: 201308
